FAERS Safety Report 8979144 (Version 2)
Quarter: 2013Q1

REPORT INFORMATION
  Report Type: Spontaneous
  Country: US (occurrence: US)
  Receive Date: 20121221
  Receipt Date: 20130304
  Transmission Date: 20140127
  Serious: Yes (Life-Threatening, Other)
  Sender: FDA-Public Use
  Company Number: US-GLAXOSMITHKLINE-A1006058A

PATIENT
  Age: 68 Year
  Sex: Female

DRUGS (4)
  1. ADVAIR [Suspect]
     Indication: ASTHMA
     Route: 055
  2. AMLODIPINE [Concomitant]
  3. FLONASE [Concomitant]
  4. PREDNISONE [Concomitant]

REACTIONS (2)
  - Asthma [Unknown]
  - Product quality issue [Unknown]
